FAERS Safety Report 5686164-0 (Version None)
Quarter: 2008Q1

REPORT INFORMATION
  Report Type: 
  Country: None (occurrence: None)
  Receive Date: 20080328
  Receipt Date: 20070703
  Transmission Date: 20080703
  Serious: No
  Sender: FDA-Public Use
  Company Number: US-BAYER-US-2007-024914

PATIENT
  Age: 19 Year
  Sex: Female
  Weight: 49 kg

DRUGS (11)
  1. MIRENA [Suspect]
     Indication: MENORRHAGIA
     Route: 015
     Dates: start: 20070614, end: 20070703
  2. MOTRIN [Concomitant]
  3. EXCEDRIN [Concomitant]
     Indication: HEADACHE
  4. TYLENOL (CAPLET) [Concomitant]
  5. PROZAC [Concomitant]
     Dosage: UNIT DOSE: 40 MG
  6. FLORINEF [Concomitant]
     Dosage: UNIT DOSE: 0.1 MG
  7. K-DUR [Concomitant]
     Dosage: UNIT DOSE: 20 MEQ
  8. ABILIFY [Concomitant]
     Dosage: UNIT DOSE: 2.5 MEQ
  9. CLONOPIN [Concomitant]
     Dosage: UNIT DOSE: 5 MG
  10. SEROQUEL [Concomitant]
     Dosage: UNIT DOSE: 25 MG
  11. SEROQUEL [Concomitant]
     Dosage: UNIT DOSE: 25 MG

REACTIONS (1)
  - MIGRAINE [None]
